FAERS Safety Report 18054199 (Version 1)
Quarter: 2020Q3

REPORT INFORMATION
  Report Type: Spontaneous
  Country: US (occurrence: US)
  Receive Date: 20200721
  Receipt Date: 20200721
  Transmission Date: 20201103
  Serious: No
  Sender: FDA-Public Use
  Company Number: None

PATIENT
  Age: 72 Year
  Sex: Female
  Weight: 56.97 kg

DRUGS (5)
  1. ANESTOZOLE [Concomitant]
  2. VITAMIN C [Concomitant]
     Active Substance: ASCORBIC ACID
  3. MEDICAL MARIJUANA [Concomitant]
     Active Substance: CANNABIS SATIVA SUBSP. INDICA TOP
  4. RECLAST [Suspect]
     Active Substance: ZOLEDRONIC ACID
     Indication: OSTEOPOROSIS
     Dosage: ?          QUANTITY:1 DF DOSAGE FORM;OTHER FREQUENCY:YEARLY ;?
     Route: 042
     Dates: start: 201905
  5. CALCIUM [Concomitant]
     Active Substance: CALCIUM

REACTIONS (7)
  - Blindness transient [None]
  - Nausea [None]
  - Chest discomfort [None]
  - Vision blurred [None]
  - Migraine [None]
  - Headache [None]
  - Sensory disturbance [None]

NARRATIVE: CASE EVENT DATE: 20191003
